FAERS Safety Report 18251095 (Version 1)
Quarter: 2020Q3

REPORT INFORMATION
  Report Type: Spontaneous
  Country: US (occurrence: US)
  Receive Date: 20200910
  Receipt Date: 20200910
  Transmission Date: 20201103
  Serious: No
  Sender: FDA-Public Use
  Company Number: US-HORIZON-TEP-1817-2020

PATIENT

DRUGS (1)
  1. TEPEZZA [Suspect]
     Active Substance: TEPROTUMUMAB-TRBW
     Indication: ENDOCRINE OPHTHALMOPATHY

REACTIONS (6)
  - Ear infection [Unknown]
  - Fatigue [Unknown]
  - Autophony [Unknown]
  - Hair growth abnormal [Unknown]
  - Hypoacusis [Unknown]
  - Stomatitis [Unknown]
